FAERS Safety Report 24614261 (Version 3)
Quarter: 2024Q4

REPORT INFORMATION
  Report Type: Spontaneous
  Country: US (occurrence: US)
  Receive Date: 20241113
  Receipt Date: 20241226
  Transmission Date: 20250115
  Serious: Yes (Other)
  Sender: BLUEPRINT MEDICINES
  Company Number: US-Blueprint Medicines Corporation-5292

PATIENT
  Age: 84 Year
  Sex: Male

DRUGS (5)
  1. AYVAKIT [Suspect]
     Active Substance: AVAPRITINIB
     Indication: Gastrointestinal stromal tumour
     Route: 048
     Dates: start: 20240910
  2. AYVAKIT [Suspect]
     Active Substance: AVAPRITINIB
     Route: 048
     Dates: start: 20240910, end: 20241202
  3. AYVAKIT [Suspect]
     Active Substance: AVAPRITINIB
  4. AMLODIPINE [Concomitant]
     Active Substance: AMLODIPINE BESYLATE
     Indication: Product used for unknown indication
     Route: 065
  5. SIMVASTATIN [Concomitant]
     Active Substance: SIMVASTATIN
     Indication: Product used for unknown indication
     Route: 065

REACTIONS (6)
  - Hepatotoxicity [Recovering/Resolving]
  - Eye inflammation [Recovering/Resolving]
  - Fatigue [Unknown]
  - Adverse drug reaction [Recovering/Resolving]
  - Peripheral swelling [Unknown]
  - Arthralgia [Unknown]
